FAERS Safety Report 5072051-8 (Version None)
Quarter: 2006Q3

REPORT INFORMATION
  Report Type: 
  Country: None (occurrence: None)
  Receive Date: 20060807
  Receipt Date: 20060724
  Transmission Date: 20061208
  Serious: Yes (Other)
  Sender: FDA-Public Use
  Company Number: DE-AVENTIS-200612166DE

PATIENT
  Sex: Female
  Weight: 68 kg

DRUGS (2)
  1. NOVALGIN [Suspect]
     Indication: DRUG USE FOR UNKNOWN INDICATION
     Dosage: DOSE: NOT REPORTED
     Route: 048
     Dates: start: 20060709, end: 20060714
  2. VOLTAREN [Suspect]
     Route: 048
     Dates: start: 20060709, end: 20060714

REACTIONS (1)
  - AGRANULOCYTOSIS [None]
